FAERS Safety Report 8072565-2 (Version None)
Quarter: 2012Q1

REPORT INFORMATION
  Report Type: 
  Country: None (occurrence: None)
  Receive Date: 20120126
  Receipt Date: 20120124
  Transmission Date: 20120608
  Serious: No
  Sender: FDA-Public Use
  Company Number: US-BAYER-2012-007788

PATIENT
  Sex: Female

DRUGS (2)
  1. BEYAZ [Suspect]
     Dosage: QD
     Route: 048
  2. YAZ [Suspect]
     Dosage: QD
     Route: 048
     Dates: start: 20020101

REACTIONS (2)
  - CONTUSION [None]
  - SPIDER VEIN [None]
